FAERS Safety Report 9298166 (Version 3)
Quarter: 2013Q2

REPORT INFORMATION
  Report Type: Spontaneous
  Country: US (occurrence: US)
  Receive Date: 20130520
  Receipt Date: 20130617
  Transmission Date: 20140414
  Serious: Yes (Other)
  Sender: FDA-Public Use
  Company Number: US-BAYER-2013-062032

PATIENT
  Age: 44 Year
  Sex: Female
  Weight: 68.03 kg

DRUGS (4)
  1. BEYAZ [Suspect]
     Indication: CONTRACEPTION
     Dosage: UNK
     Route: 048
     Dates: start: 201102, end: 20130508
  2. BEYAZ [Suspect]
     Indication: PREMENSTRUAL SYNDROME
  3. BEYAZ [Suspect]
     Indication: METRORRHAGIA
  4. AMBIEN CR [Concomitant]
     Dosage: 12.5 MG, PRN

REACTIONS (2)
  - Deep vein thrombosis [None]
  - Pain [None]
